FAERS Safety Report 14546645 (Version 1)
Quarter: 2018Q1

REPORT INFORMATION
  Report Type: Spontaneous
  Country: US (occurrence: US)
  Receive Date: 20180219
  Receipt Date: 20180219
  Transmission Date: 20180509
  Serious: Yes (Other)
  Sender: FDA-Public Use
  Company Number: US-ASTELLAS-2018US007705

PATIENT
  Age: 63 Year
  Sex: Male

DRUGS (5)
  1. THYMOGLOBULIN [Concomitant]
     Active Substance: LAPINE T-LYMPHOCYTE IMMUNE GLOBULIN
     Indication: RENAL TRANSPLANT
     Route: 065
  2. TACROLIMUS. [Suspect]
     Active Substance: TACROLIMUS
     Indication: RENAL TRANSPLANT
     Dosage: UNK UNK, UNKNOWN FREQ. (TROUGH LEVEL 4-6 NG/DL)
     Route: 065
  3. PREDNISONE. [Concomitant]
     Active Substance: PREDNISONE
     Indication: RENAL TRANSPLANT
     Route: 065
  4. MYCOPHENOLATE MOFETIL. [Concomitant]
     Active Substance: MYCOPHENOLATE MOFETIL
     Indication: RENAL TRANSPLANT
     Dosage: UNK UNK, UNKNOWN FREQ.
     Route: 065
  5. MYCOPHENOLATE MOFETIL. [Concomitant]
     Active Substance: MYCOPHENOLATE MOFETIL
     Route: 065

REACTIONS (11)
  - Lymphatic obstruction [Unknown]
  - Lymphadenopathy [Unknown]
  - Dyspnoea [Unknown]
  - Splenic lesion [Unknown]
  - Hepatic lesion [Unknown]
  - Bladder injury [Unknown]
  - Serositis [Unknown]
  - Adrenal gland injury [Unknown]
  - Renal mass [Unknown]
  - Pleural effusion [Unknown]
  - Ascites [Unknown]
